FAERS Safety Report 9402128 (Version 2)
Quarter: 2013Q3

REPORT INFORMATION
  Report Type: Report from Study
  Country: BE (occurrence: BE)
  Receive Date: 20130716
  Receipt Date: 20130719
  Transmission Date: 20140515
  Serious: Yes (Hospitalization)
  Sender: FDA-Public Use
  Company Number: PHHO2013BE009155

PATIENT
  Age: 69 Year
  Sex: Female
  Weight: 54.5 kg

DRUGS (6)
  1. BEZ235 [Suspect]
     Indication: LUNG NEOPLASM MALIGNANT
     Dosage: 100 MG, BID
     Route: 048
     Dates: start: 20130627, end: 20130710
  2. AFINITOR [Suspect]
     Indication: LUNG NEOPLASM MALIGNANT
     Dosage: 2.5 MG, QD
     Dates: start: 20130627, end: 20130710
  3. ALLOPURINOL [Concomitant]
     Indication: PROPHYLAXIS
  4. FOLAVIT [Concomitant]
     Indication: PROPHYLAXIS
  5. FUROSEMIDE [Concomitant]
     Indication: RENAL FAILURE
     Dates: start: 20130214
  6. LORAZEPAM [Concomitant]
     Indication: INSOMNIA

REACTIONS (2)
  - Lung neoplasm malignant [Unknown]
  - Malignant neoplasm progression [Unknown]
